FAERS Safety Report 25777129 (Version 2)
Quarter: 2025Q4

REPORT INFORMATION
  Report Type: Spontaneous
  Country: US (occurrence: US)
  Receive Date: 20250909
  Receipt Date: 20251002
  Transmission Date: 20260118
  Serious: Yes (Hospitalization, Other)
  Sender: UCB
  Company Number: US-UCBSA-2025049186

PATIENT
  Age: 60 Year
  Sex: Female
  Weight: 75.782 kg

DRUGS (4)
  1. CIMZIA [Suspect]
     Active Substance: CERTOLIZUMAB PEGOL
     Indication: Rheumatoid arthritis
     Dosage: 400 MILLIGRAM, EV 2 WEEKS(QOW)
     Route: 058
  2. CIMZIA [Suspect]
     Active Substance: CERTOLIZUMAB PEGOL
     Indication: Juvenile idiopathic arthritis
     Dosage: 400 MILLIGRAM, EV 4 WEEKS
     Route: 058
  3. DUPIXENT [Concomitant]
     Active Substance: DUPILUMAB
     Indication: Nasal congestion
     Dosage: 300 MILLIGRAM, EV 2 WEEKS(QOW)
     Route: 058
  4. DUPIXENT [Concomitant]
     Active Substance: DUPILUMAB
     Indication: Nasal polyps

REACTIONS (7)
  - Cerebrovascular accident [Unknown]
  - Rheumatoid arthritis [Unknown]
  - Blood pressure abnormal [Unknown]
  - Illness [Unknown]
  - Product temperature excursion issue [Unknown]
  - Poor quality product administered [Unknown]
  - Therapy interrupted [Unknown]

NARRATIVE: CASE EVENT DATE: 20250612
